FAERS Safety Report 6655377-3 (Version None)
Quarter: 2010Q1

REPORT INFORMATION
  Report Type: 
  Country: None (occurrence: None)
  Receive Date: 20100329
  Receipt Date: 20100323
  Transmission Date: 20100710
  Serious: Yes (Hospitalization)
  Sender: FDA-Public Use
  Company Number: PHHY2010DK09786

PATIENT
  Sex: Male

DRUGS (1)
  1. DICLOFENAC [Suspect]
     Indication: PAIN
     Dosage: 50 MG, TID
     Dates: start: 20080519, end: 20080716

REACTIONS (7)
  - ABDOMINAL HERNIA [None]
  - ABDOMINAL PAIN UPPER [None]
  - BONE DEBRIDEMENT [None]
  - GASTRIC ULCER PERFORATION [None]
  - GASTRIC ULCER SURGERY [None]
  - INFECTION [None]
  - OSTEOMYELITIS [None]
